FAERS Safety Report 10204914 (Version 1)
Quarter: 2014Q2

REPORT INFORMATION
  Report Type: Spontaneous
  Country: IE (occurrence: IE)
  Receive Date: 20140529
  Receipt Date: 20140529
  Transmission Date: 20141212
  Serious: Yes (Other)
  Sender: FDA-Public Use
  Company Number: PHHY2014IE060921

PATIENT
  Age: 55 Year
  Sex: Female

DRUGS (1)
  1. WARFARIN [Suspect]
     Indication: ANTICOAGULANT THERAPY

REACTIONS (3)
  - Proteus test positive [Recovered/Resolved]
  - Skin ulcer [Recovered/Resolved]
  - Skin necrosis [Recovered/Resolved]
